FAERS Safety Report 5250278-X (Version None)
Quarter: 2007Q1

REPORT INFORMATION
  Report Type: 
  Country: None (occurrence: None)
  Receive Date: 20070228
  Receipt Date: 20060315
  Transmission Date: 20070707
  Serious: No
  Sender: FDA-Public Use
  Company Number: US-GLAXOSMITHKLINE-A0597703A

PATIENT
  Age: 55 Year
  Sex: Female

DRUGS (4)
  1. LAMICTAL [Suspect]
     Dosage: 100MG PER DAY
     Route: 048
     Dates: start: 20051215
  2. VERAPAMIL [Concomitant]
  3. BUSPAR [Concomitant]
  4. ELAVIL [Concomitant]

REACTIONS (3)
  - DRY SKIN [None]
  - ERYTHEMA [None]
  - EYE SWELLING [None]
